FAERS Safety Report 25860557 (Version 1)
Quarter: 2025Q3

REPORT INFORMATION
  Report Type: Spontaneous
  Country: US (occurrence: US)
  Receive Date: 20250929
  Receipt Date: 20250929
  Transmission Date: 20251021
  Serious: Yes (Hospitalization, Other)
  Sender: STRIDES
  Company Number: US-STRIDES ARCOLAB LIMITED-2025SP010257

PATIENT
  Age: 76 Year
  Sex: Male

DRUGS (4)
  1. PREDNISOLONE [Suspect]
     Active Substance: PREDNISOLONE
     Indication: Chronic obstructive pulmonary disease
     Route: 065
  2. PREDNISOLONE [Suspect]
     Active Substance: PREDNISOLONE
     Indication: Pneumocystis jirovecii pneumonia
     Route: 065
  3. AZITHROMYCIN [Suspect]
     Active Substance: AZITHROMYCIN
     Indication: Chronic obstructive pulmonary disease
     Route: 065
  4. BACTRIM [Suspect]
     Active Substance: SULFAMETHOXAZOLE\TRIMETHOPRIM
     Indication: Pneumocystis jirovecii pneumonia
     Route: 065

REACTIONS (2)
  - Therapy non-responder [Unknown]
  - Off label use [Unknown]
